FAERS Safety Report 10212065 (Version 2)
Quarter: 2014Q3

REPORT INFORMATION
  Report Type: Spontaneous
  Country: US (occurrence: US)
  Receive Date: 20140602
  Receipt Date: 20140703
  Transmission Date: 20150326
  Serious: No
  Sender: FDA-Public Use
  Company Number: US-AMGEN-USASP2014034656

PATIENT
  Age: 43 Year
  Sex: Female
  Weight: 72.56 kg

DRUGS (2)
  1. ENBREL [Suspect]
     Active Substance: ETANERCEPT
     Indication: PSORIASIS
     Dosage: 50 MG, 2 TIMES/WK FOR THREE MONTHS THEN WEEKLY
     Route: 065
     Dates: start: 200509, end: 200612
  2. ENBREL [Suspect]
     Active Substance: ETANERCEPT
     Indication: PSORIATIC ARTHROPATHY

REACTIONS (7)
  - Pain in extremity [Recovered/Resolved]
  - Pruritus generalised [Not Recovered/Not Resolved]
  - Gait disturbance [Recovered/Resolved]
  - Incorrect route of drug administration [Unknown]
  - Psoriasis [Not Recovered/Not Resolved]
  - Injection site reaction [Unknown]
  - Injection site pain [Recovered/Resolved]

NARRATIVE: CASE EVENT DATE: 200509
